FAERS Safety Report 8848537 (Version 2)
Quarter: 2015Q3

REPORT INFORMATION
  Report Type: Report from Study
  Country: US (occurrence: US)
  Receive Date: 20121018
  Receipt Date: 20150824
  Transmission Date: 20151125
  Serious: Yes (Other)
  Sender: FDA-Public Use
  Company Number: US-ROCHE-1140628

PATIENT
  Sex: Male
  Weight: 45.6 kg

DRUGS (17)
  1. PROTROPIN [Suspect]
     Active Substance: SOMATREM
     Route: 058
  2. PROTROPIN [Suspect]
     Active Substance: SOMATREM
     Route: 058
  3. PROTROPIN [Suspect]
     Active Substance: SOMATREM
     Route: 058
  4. NUTROPIN [Suspect]
     Active Substance: SOMATROPIN
     Indication: DWARFISM
     Route: 058
     Dates: start: 199205
  5. PROTROPIN [Suspect]
     Active Substance: SOMATREM
     Indication: GROWTH HORMONE DEFICIENCY
     Route: 058
  6. PROTROPIN [Suspect]
     Active Substance: SOMATREM
     Route: 058
  7. PROTROPIN [Suspect]
     Active Substance: SOMATREM
     Route: 058
  8. PROTROPIN [Suspect]
     Active Substance: SOMATREM
     Route: 058
  9. PROTROPIN [Suspect]
     Active Substance: SOMATREM
     Indication: DWARFISM
     Route: 058
  10. PROTROPIN [Suspect]
     Active Substance: SOMATREM
     Route: 058
  11. PROTROPIN [Suspect]
     Active Substance: SOMATREM
     Route: 058
  12. NUTROPIN [Suspect]
     Active Substance: SOMATROPIN
     Indication: GROWTH HORMONE DEFICIENCY
  13. PROTROPIN [Suspect]
     Active Substance: SOMATREM
     Route: 058
  14. PROTROPIN [Suspect]
     Active Substance: SOMATREM
     Route: 058
  15. PROTROPIN [Suspect]
     Active Substance: SOMATREM
     Route: 058
  16. PROTROPIN [Suspect]
     Active Substance: SOMATREM
     Route: 058
  17. PROTROPIN [Suspect]
     Active Substance: SOMATREM
     Route: 058

REACTIONS (4)
  - Joint range of motion decreased [Unknown]
  - Scoliosis [Unknown]
  - Acne [Unknown]
  - Drug dose omission [Unknown]
